FAERS Safety Report 14481317 (Version 2)
Quarter: 2018Q1

REPORT INFORMATION
  Report Type: Spontaneous
  Country: AM (occurrence: AM)
  Receive Date: 20180202
  Receipt Date: 20180223
  Transmission Date: 20180509
  Serious: Yes (Disabling)
  Sender: FDA-Public Use
  Company Number: PHHY2018AM013399

PATIENT
  Age: 65 Year
  Sex: Male

DRUGS (2)
  1. UPERIO [Suspect]
     Active Substance: SACUBITRIL\VALSARTAN
     Indication: CARDIAC FAILURE
     Dosage: 50 MG, BID
     Route: 048
     Dates: start: 20171219, end: 20180109
  2. RAMIPRIL. [Suspect]
     Active Substance: RAMIPRIL
     Indication: PRODUCT USED FOR UNKNOWN INDICATION
     Dosage: 5 MG, QD
     Route: 065
     Dates: end: 20180109

REACTIONS (8)
  - Skin discolouration [Recovering/Resolving]
  - Inflammation [Unknown]
  - Contraindicated product administered [Unknown]
  - Skin exfoliation [Unknown]
  - Breath sounds absent [Unknown]
  - Soft tissue necrosis [Recovering/Resolving]
  - Breath sounds abnormal [Unknown]
  - Heart sounds abnormal [Recovering/Resolving]

NARRATIVE: CASE EVENT DATE: 20171222
